FAERS Safety Report 23622099 (Version 2)
Quarter: 2024Q1

REPORT INFORMATION
  Report Type: Spontaneous
  Country: DE (occurrence: DE)
  Receive Date: 20240312
  Receipt Date: 20240322
  Transmission Date: 20240410
  Serious: Yes (Other)
  Sender: FDA-Public Use
  Company Number: DE-OPELLA-2024OHG007101

PATIENT
  Age: 79 Year
  Sex: Female

DRUGS (3)
  1. DULCOLAX (BISACODYL) [Suspect]
     Active Substance: BISACODYL
     Indication: Product used for unknown indication
  2. DULCOLAX (BISACODYL) [Suspect]
     Active Substance: BISACODYL
  3. DULCOLAX (BISACODYL) [Suspect]
     Active Substance: BISACODYL
     Indication: Product used for unknown indication

REACTIONS (2)
  - Haematochezia [Unknown]
  - Drug ineffective [Unknown]
